FAERS Safety Report 4710516-6 (Version None)
Quarter: 2005Q3

REPORT INFORMATION
  Report Type: 
  Country: None (occurrence: None)
  Receive Date: 20050707
  Receipt Date: 20050629
  Transmission Date: 20060218
  Serious: Yes (Hospitalization, Other)
  Sender: FDA-Public Use
  Company Number: 2005086982

PATIENT
  Age: 15 Year
  Sex: Female

DRUGS (4)
  1. NEURONTIN [Suspect]
     Indication: NEUROPATHIC PAIN
     Dosage: 900 MG (300 MG,)
     Dates: start: 20050601, end: 20050606
  2. TRAMADOL HCL [Suspect]
     Indication: ILL-DEFINED DISORDER
  3. AMITRIPTYLINE HCL [Concomitant]
  4. CLONIDINE [Concomitant]

REACTIONS (5)
  - CONFUSIONAL STATE [None]
  - CONVULSION [None]
  - DRUG INTERACTION [None]
  - DRUG LEVEL ABOVE THERAPEUTIC [None]
  - DRUG TOXICITY [None]
